FAERS Safety Report 11226956 (Version 1)
Quarter: 2015Q2

REPORT INFORMATION
  Report Type: Spontaneous
  Country: US (occurrence: US)
  Receive Date: 20150630
  Receipt Date: 20150630
  Transmission Date: 20150821
  Serious: No
  Sender: FDA-Public Use
  Company Number: US-BRISTOL-MYERS SQUIBB COMPANY-BMS-2015-043078

PATIENT
  Sex: Female

DRUGS (1)
  1. GLUCOPHAGE [Suspect]
     Active Substance: METFORMIN HYDROCHLORIDE
     Indication: PRODUCT USED FOR UNKNOWN INDICATION
     Dosage: UNK
     Route: 048
     Dates: start: 2014

REACTIONS (5)
  - Diarrhoea [Unknown]
  - Back pain [Unknown]
  - Malaise [Unknown]
  - Insomnia [Unknown]
  - Flatulence [Unknown]

NARRATIVE: CASE EVENT DATE: 2015
